FAERS Safety Report 7954097-2 (Version None)
Quarter: 2011Q4

REPORT INFORMATION
  Report Type: 
  Country: None (occurrence: None)
  Receive Date: 20111202
  Receipt Date: 20111130
  Transmission Date: 20120403
  Serious: Yes (Hospitalization)
  Sender: FDA-Public Use
  Company Number: US-PFIZER INC-2011292659

PATIENT
  Sex: Female
  Weight: 90.703 kg

DRUGS (9)
  1. PREPARATION H HEMORRHOIDAL SUPPOSITORIES [Suspect]
     Indication: CONSTIPATION
  2. FIORICET [Suspect]
     Indication: MIGRAINE
     Dosage: UNK
     Dates: start: 20110101
  3. PREPARATION H HEMORRHOIDAL SUPPOSITORIES [Suspect]
     Indication: HAEMORRHOIDS
     Dosage: UNK
     Dates: start: 20110101
  4. PREPARATION H HEMORRHOIDAL SUPPOSITORIES [Suspect]
     Indication: PAIN
  5. PREPARATION H HEMORRHOIDAL SUPPOSITORIES [Suspect]
     Indication: ANORECTAL DISORDER
  6. BOTOX [Suspect]
     Indication: MIGRAINE
     Dosage: UNK
     Dates: start: 20110927
  7. LITHIUM [Concomitant]
     Indication: BIPOLAR II DISORDER
     Dosage: UNK
  8. CLONIDINE [Concomitant]
     Indication: HYPERTENSION
     Dosage: 0.2 MG, UNK
  9. PREPARATION H HEMORRHOIDAL SUPPOSITORIES [Suspect]
     Indication: FAECES HARD

REACTIONS (16)
  - PAIN [None]
  - BLADDER SPASM [None]
  - MUSCLE SPASMS [None]
  - ARTHRALGIA [None]
  - DISCOMFORT [None]
  - PHOTOSENSITIVITY REACTION [None]
  - INFLUENZA LIKE ILLNESS [None]
  - ANORECTAL DISORDER [None]
  - CONSTIPATION [None]
  - DRUG INEFFECTIVE [None]
  - DYSSTASIA [None]
  - HAEMORRHOIDAL HAEMORRHAGE [None]
  - VAGINISMUS [None]
  - INJECTION SITE PAIN [None]
  - FAECES HARD [None]
  - MIGRAINE [None]
